FAERS Safety Report 9703095 (Version 1)
Quarter: 2013Q4

REPORT INFORMATION
  Report Type: Spontaneous
  Country: US (occurrence: US)
  Receive Date: 20131122
  Receipt Date: 20131122
  Transmission Date: 20140711
  Serious: No
  Sender: FDA-Public Use
  Company Number: US-BIOGENIDEC-2005BI017315

PATIENT
  Age: 49 Year
  Sex: Female
  Weight: 82 kg

DRUGS (2)
  1. AVONEX [Suspect]
     Indication: MULTIPLE SCLEROSIS
     Route: 030
     Dates: start: 20020106
  2. AVONEX [Suspect]
     Indication: MULTIPLE SCLEROSIS
     Route: 030

REACTIONS (5)
  - Cardiac disorder [Not Recovered/Not Resolved]
  - Renal disorder [Not Recovered/Not Resolved]
  - Influenza like illness [Recovered/Resolved]
  - Paraesthesia [Recovered/Resolved]
  - Fatigue [Not Recovered/Not Resolved]
